FAERS Safety Report 15459080 (Version 1)
Quarter: 2018Q4

REPORT INFORMATION
  Report Type: Report from Study
  Country: US (occurrence: US)
  Receive Date: 20181003
  Receipt Date: 20181003
  Transmission Date: 20190204
  Serious: Yes (Hospitalization)
  Sender: FDA-Public Use
  Company Number: PHEH2018US041004

PATIENT
  Sex: Female

DRUGS (1)
  1. ZOMETA [Suspect]
     Active Substance: ZOLEDRONIC ACID
     Indication: PRODUCT USED FOR UNKNOWN INDICATION
     Route: 065

REACTIONS (8)
  - Breast cancer [Unknown]
  - Arthropathy [Unknown]
  - Skin lesion [Unknown]
  - Skin cancer [Unknown]
  - Bone loss [Unknown]
  - Bone cancer [Unknown]
  - Diarrhoea [Unknown]
  - Deep vein thrombosis [Unknown]
